FAERS Safety Report 5985912-X (Version None)
Quarter: 2008Q4

REPORT INFORMATION
  Report Type: 
  Country: None (occurrence: None)
  Receive Date: 20081208
  Receipt Date: 20081208
  Transmission Date: 20090506
  Serious: Yes (Other)
  Sender: FDA-Public Use
  Company Number: None

PATIENT
  Sex: Male
  Weight: 106.5953 kg

DRUGS (2)
  1. ZOCOR [Suspect]
     Dosage: 1 PER DAY ORAL
     Route: 048
     Dates: start: 20030101, end: 20081125
  2. SIMVASTATIN [Suspect]
     Dosage: 40 MG 1 PER DAY ORAL
     Route: 048

REACTIONS (3)
  - NO THERAPEUTIC RESPONSE [None]
  - TENDON DISORDER [None]
  - TENDONITIS [None]
